FAERS Safety Report 25226339 (Version 4)
Quarter: 2025Q3

REPORT INFORMATION
  Report Type: Report from Study
  Country: US (occurrence: US)
  Receive Date: 20250422
  Receipt Date: 20250810
  Transmission Date: 20251021
  Serious: Yes (Hospitalization, Disabling, Other)
  Sender: ALEXION PHARMACEUTICALS
  Company Number: US-AstraZeneca-CH-00851321A

PATIENT
  Age: 45 Year
  Sex: Female
  Weight: 90.7 kg

DRUGS (23)
  1. SOLIRIS [Suspect]
     Active Substance: ECULIZUMAB
     Indication: Myasthenia gravis
     Route: 065
  2. SOLIRIS [Suspect]
     Active Substance: ECULIZUMAB
     Route: 065
     Dates: start: 20230103, end: 20230710
  3. ULTOMIRIS [Suspect]
     Active Substance: RAVULIZUMAB-CWVZ
     Indication: Myasthenia gravis
     Route: 065
  4. MESTINON [Suspect]
     Active Substance: PYRIDOSTIGMINE BROMIDE
     Dosage: 60 MILLIGRAM, QID
     Dates: end: 202306
  5. MESTINON [Suspect]
     Active Substance: PYRIDOSTIGMINE BROMIDE
     Dosage: 60 MILLIGRAM, TID
  6. MESTINON [Suspect]
     Active Substance: PYRIDOSTIGMINE BROMIDE
  7. AZATHIOPRINE [Concomitant]
     Active Substance: AZATHIOPRINE
     Dosage: 50 MILLIGRAM, QD
     Route: 065
     Dates: start: 202011
  8. AZATHIOPRINE [Concomitant]
     Active Substance: AZATHIOPRINE
     Dosage: 200 MILLIGRAM, QD
     Route: 065
  9. PREDNISONE [Concomitant]
     Active Substance: PREDNISONE
     Route: 065
  10. PREDNISONE [Concomitant]
     Active Substance: PREDNISONE
     Route: 065
  11. PREDNISONE [Concomitant]
     Active Substance: PREDNISONE
     Dosage: 10 MILLIGRAM, QD
     Route: 065
     Dates: start: 202207
  12. HUMAN IMMUNOGLOBULIN G [Concomitant]
     Active Substance: HUMAN IMMUNOGLOBULIN G
     Route: 065
  13. ZOSYN [Concomitant]
     Active Substance: PIPERACILLIN SODIUM\TAZOBACTAM SODIUM
     Route: 065
  14. VANCOMYCIN [Concomitant]
     Active Substance: VANCOMYCIN
     Route: 065
  15. IMURAN [Concomitant]
     Active Substance: AZATHIOPRINE
     Dosage: 200 MILLIGRAM, QD
     Dates: start: 20250327, end: 20250327
  16. VITAMIN D3 [Concomitant]
     Active Substance: CHOLECALCIFEROL
     Dosage: 1000 UNITS, QD
  17. VITAMIN B12 [Concomitant]
     Active Substance: CYANOCOBALAMIN
  18. VYVGART [Concomitant]
     Active Substance: EFGARTIGIMOD ALFA-FCAB
  19. IRON [Concomitant]
     Active Substance: IRON
     Dosage: 325 MILLIGRAM, QD
  20. MOTRIN [Concomitant]
     Active Substance: IBUPROFEN
     Indication: Pain
     Dates: start: 20250207, end: 20250309
  21. DELTASONE [Concomitant]
     Active Substance: PREDNISONE
     Dosage: 10 MILLIGRAM, QD
     Dates: start: 20250416
  22. BACTRIM [Concomitant]
     Active Substance: SULFAMETHOXAZOLE\TRIMETHOPRIM
     Dosage: 480 MILLIGRAM, TIW
     Dates: start: 20241120
  23. TYLENOL [Concomitant]
     Active Substance: ACETAMINOPHEN
     Route: 065

REACTIONS (41)
  - Asthenia [Not Recovered/Not Resolved]
  - Myasthenia gravis [Unknown]
  - Bacteraemia [Unknown]
  - Sepsis [Unknown]
  - Respiratory failure [Unknown]
  - Disability [Unknown]
  - Headache [Recovering/Resolving]
  - Eyelid ptosis [Unknown]
  - Dysphagia [Recovering/Resolving]
  - Dysarthria [Unknown]
  - Mastication disorder [Unknown]
  - Fatigue [Recovered/Resolved]
  - Diarrhoea [Unknown]
  - Dry skin [Unknown]
  - Stress [Unknown]
  - Insurance issue [Unknown]
  - Vision blurred [Unknown]
  - Illness [Unknown]
  - Aphonia [Recovered/Resolved]
  - Breath sounds abnormal [Recovered/Resolved]
  - Dyspnoea [Recovered/Resolved]
  - Upper respiratory tract infection [Unknown]
  - Respiratory syncytial virus infection [Unknown]
  - Streptococcal infection [Unknown]
  - Panic attack [Unknown]
  - Muscular weakness [Recovered/Resolved]
  - Orthopnoea [Unknown]
  - Anaemia [Unknown]
  - Uterine leiomyoma [Unknown]
  - Sleep apnoea syndrome [Unknown]
  - Carpal tunnel decompression [Unknown]
  - Snoring [Unknown]
  - Periodic limb movement disorder [Unknown]
  - Photodermatosis [Unknown]
  - Melanocytic naevus [Unknown]
  - Seborrhoeic keratosis [Unknown]
  - Solar lentigo [Unknown]
  - Constipation [Unknown]
  - Dyspnoea exertional [Unknown]
  - Infusion site pruritus [Unknown]
  - Dizziness [Unknown]

NARRATIVE: CASE EVENT DATE: 20210618
